FAERS Safety Report 6782476-8 (Version None)
Quarter: 2010Q2

REPORT INFORMATION
  Report Type: 
  Country: None (occurrence: None)
  Receive Date: 20100616
  Receipt Date: 20100607
  Transmission Date: 20101027
  Serious: Yes (Hospitalization, Other)
  Sender: FDA-Public Use
  Company Number: 8044081

PATIENT
  Sex: Female
  Weight: 117.1 kg

DRUGS (12)
  1. CERTOLIZUMAB PEGOL [Suspect]
     Indication: RHEUMATOID ARTHRITIS
     Dosage: 400 MG 1X/2WEEKS, -NR OF DOSES :3 SUBCUTANEOUS0, 200 MG 1X2/WEEKS SUBCUTANEOUS
     Route: 058
     Dates: start: 20090102, end: 20090201
  2. CERTOLIZUMAB PEGOL [Suspect]
     Indication: RHEUMATOID ARTHRITIS
     Dosage: 400 MG 1X/2WEEKS, -NR OF DOSES :3 SUBCUTANEOUS0, 200 MG 1X2/WEEKS SUBCUTANEOUS
     Route: 058
     Dates: start: 20090201, end: 20090409
  3. METHOTREXATE [Concomitant]
  4. FOLIC ACID [Concomitant]
  5. JANUVIA [Concomitant]
  6. PRILOSEC [Concomitant]
  7. LISINOPRIL [Concomitant]
  8. ACTOS [Concomitant]
  9. INSULIN [Concomitant]
  10. LORTAB [Concomitant]
  11. POTASSIUM [Concomitant]
  12. THE VISION FORMULA [Concomitant]

REACTIONS (20)
  - ABSCESS LIMB [None]
  - BLOOD CREATININE DECREASED [None]
  - BLOOD GLUCOSE INCREASED [None]
  - BLOOD POTASSIUM DECREASED [None]
  - BLOOD SODIUM DECREASED [None]
  - BLOOD UREA NITROGEN/CREATININE RATIO INCREASED [None]
  - CELLULITIS [None]
  - CULTURE WOUND POSITIVE [None]
  - EXCORIATION [None]
  - HAEMATOCRIT DECREASED [None]
  - HYPERKERATOSIS [None]
  - LYMPHOCYTE COUNT DECREASED [None]
  - MONOCYTE COUNT INCREASED [None]
  - NEUTROPHIL COUNT INCREASED [None]
  - PAIN [None]
  - PCO2 DECREASED [None]
  - RED BLOOD CELL COUNT DECREASED [None]
  - SOFT TISSUE NECROSIS [None]
  - STAPHYLOCOCCAL INFECTION [None]
  - WHITE BLOOD CELL COUNT INCREASED [None]
